FAERS Safety Report 19115724 (Version 1)
Quarter: 2021Q2

REPORT INFORMATION
  Report Type: Spontaneous
  Country: ES (occurrence: ES)
  Receive Date: 20210409
  Receipt Date: 20210409
  Transmission Date: 20210717
  Serious: Yes (Death, Hospitalization)
  Sender: FDA-Public Use
  Company Number: ES-009507513-2104ESP001113

PATIENT
  Age: 87 Year
  Sex: Male

DRUGS (2)
  1. CUBICIN [Suspect]
     Active Substance: DAPTOMYCIN
     Indication: GENITOURINARY TRACT INFECTION
     Dosage: 875 MG EVERY 24 HOURS
     Route: 042
     Dates: start: 20201211, end: 20201217
  2. CEFTRIAXONE. [Interacting]
     Active Substance: CEFTRIAXONE
     Indication: GENITOURINARY TRACT INFECTION
     Dosage: 2 GRAMS EVERY 24 HOURS
     Route: 042
     Dates: start: 20201210, end: 20201217

REACTIONS (2)
  - Clostridium difficile colitis [Fatal]
  - Clostridial sepsis [Fatal]

NARRATIVE: CASE EVENT DATE: 20210114
